FAERS Safety Report 10282309 (Version 3)
Quarter: 2014Q3

REPORT INFORMATION
  Report Type: Report from Study
  Country: JP (occurrence: JP)
  Receive Date: 20140707
  Receipt Date: 20140806
  Transmission Date: 20150326
  Serious: Yes (Death, Hospitalization, Other)
  Sender: FDA-Public Use
  Company Number: JP-B.I. PHARMACEUTICALS,INC./RIDGEFIELD-2014-BI-30580NB

PATIENT
  Age: 66 Year
  Sex: Male
  Weight: 50.4 kg

DRUGS (3)
  1. GILOTRIF [Suspect]
     Active Substance: AFATINIB
     Dosage: 30 MG
     Route: 048
     Dates: start: 20140602, end: 20140605
  2. GILOTRIF [Suspect]
     Active Substance: AFATINIB
     Dosage: 40 MG
     Route: 048
     Dates: start: 20140520
  3. GILOTRIF [Suspect]
     Active Substance: AFATINIB
     Indication: LUNG ADENOCARCINOMA
     Dosage: 40 MG
     Route: 048
     Dates: start: 20140508, end: 20140511

REACTIONS (6)
  - Pneumonia [Recovered/Resolved]
  - Malignant neoplasm progression [Fatal]
  - Diarrhoea [Recovered/Resolved]
  - Interstitial lung disease [Not Recovered/Not Resolved]
  - Lymphangiosis carcinomatosa [Unknown]
  - Renal impairment [Recovered/Resolved]

NARRATIVE: CASE EVENT DATE: 201405
